FAERS Safety Report 18098132 (Version 1)
Quarter: 2020Q3

REPORT INFORMATION
  Report Type: Spontaneous
  Country: US (occurrence: US)
  Receive Date: 20200730
  Receipt Date: 20200730
  Transmission Date: 20201103
  Serious: Yes (Death)
  Sender: FDA-Public Use
  Company Number: None

PATIENT
  Age: 83 Year
  Sex: Male

DRUGS (1)
  1. TOBRAMYCIN 300MG/5ML 20ML=4NEB [Suspect]
     Active Substance: TOBRAMYCIN
     Indication: IDIOPATHIC PULMONARY FIBROSIS
     Route: 055
     Dates: start: 20160217

REACTIONS (1)
  - Completed suicide [None]

NARRATIVE: CASE EVENT DATE: 20200713
